FAERS Safety Report 12408358 (Version 1)
Quarter: 2016Q2

REPORT INFORMATION
  Report Type: Spontaneous
  Country: US (occurrence: US)
  Receive Date: 20160526
  Receipt Date: 20160526
  Transmission Date: 20160815
  Serious: Yes (Other)
  Sender: FDA-Public Use
  Company Number: US-TEVA-661525USA

PATIENT
  Age: 47 Year
  Sex: Male

DRUGS (1)
  1. COPAXONE [Suspect]
     Active Substance: GLATIRAMER ACETATE
     Indication: MULTIPLE SCLEROSIS
     Route: 058
     Dates: start: 20141121, end: 20160405

REACTIONS (3)
  - Multiple sclerosis relapse [Unknown]
  - Disturbance in attention [Unknown]
  - Vision blurred [Unknown]

NARRATIVE: CASE EVENT DATE: 20160401
